FAERS Safety Report 19240342 (Version 2)
Quarter: 2021Q2

REPORT INFORMATION
  Report Type: Spontaneous
  Country: DE (occurrence: DE)
  Receive Date: 20210511
  Receipt Date: 20210517
  Transmission Date: 20210717
  Serious: Yes (Other)
  Sender: FDA-Public Use
  Company Number: DE-TORRENT-00020208

PATIENT
  Age: 68 Year
  Sex: Male
  Weight: 76 kg

DRUGS (1)
  1. ITRACONAZOL HEUMANN 100 MG HARTKAPSELN [Suspect]
     Active Substance: ITRACONAZOLE
     Indication: FUNGAL SKIN INFECTION
     Dosage: FOR 1 WEEK, 2 TIMES 50 MG IN MORNING AND ?EVENING, EVERY 3 W BREAK, THEN 1 W 100 MG TWICE A DAY
     Route: 048
     Dates: start: 20200723, end: 20201011

REACTIONS (2)
  - Hypertension [Recovered/Resolved]
  - Arrhythmia [Recovered/Resolved]

NARRATIVE: CASE EVENT DATE: 20201014
